FAERS Safety Report 8847204 (Version 1)
Quarter: 2012Q4

REPORT INFORMATION
  Report Type: 
  Country: IT (occurrence: IT)
  Receive Date: 20121018
  Receipt Date: 20121018
  Transmission Date: 20130627
  Serious: Yes (Hospitalization, Other)
  Sender: FDA-Public Use
  Company Number: IT-ACCORD-014972

PATIENT
  Age: 47 Year
  Sex: Female

DRUGS (6)
  1. BIPERIDEN [Concomitant]
     Indication: TREMOR LIMB
  2. VALPROATE SODIUM [Concomitant]
     Indication: ORGANIC BRAIN SYNDROME
  3. SERTRALINE [Suspect]
     Indication: OBSESSIVE-COMPULSIVE DISORDER
     Dosage: started treatment with 200 mg/day and later on the dose was increased
  4. ZIPRASIDONE HYDROCHLORIDE [Concomitant]
     Indication: ORGANIC BRAIN SYNDROME
  5. CLONAZEPAM [Concomitant]
     Indication: ORGANIC BRAIN SYNDROME
  6. QUETIAPINE FUMARATE [Suspect]
     Indication: PSYCHOTIC DISORDER

REACTIONS (2)
  - Pleurothotonus [Recovered/Resolved]
  - Tremor [Unknown]
